FAERS Safety Report 5504703-7 (Version None)
Quarter: 2007Q4

REPORT INFORMATION
  Report Type: 
  Country: None (occurrence: None)
  Receive Date: 20071031
  Receipt Date: 20071022
  Transmission Date: 20080405
  Serious: Yes (Other)
  Sender: FDA-Public Use
  Company Number: A-CH2007-17632

PATIENT
  Age: 53 Year
  Sex: Female
  Weight: 88 kg

DRUGS (11)
  1. TRACLEER [Suspect]
     Indication: PULMONARY HYPERTENSION
     Dosage: 62.5 MG, BID, ORAL, 125 MG, BID, ORAL
     Route: 048
     Dates: start: 20031001, end: 20031101
  2. TRACLEER [Suspect]
     Indication: PULMONARY HYPERTENSION
     Dosage: 62.5 MG, BID, ORAL, 125 MG, BID, ORAL
     Route: 048
     Dates: start: 20031101
  3. VIAGRA [Concomitant]
  4. BUMETANIDE [Concomitant]
  5. ALDACTONE [Concomitant]
  6. CITALOPRAM HYDROBROMIDE [Concomitant]
  7. LORAMET (LORMETAZEPAM) [Concomitant]
  8. DILTIAZEM HYDROCHLORIDE [Concomitant]
  9. MARCUMAR [Concomitant]
  10. OMEPRAZOLE [Concomitant]
  11. FLOLAN [Concomitant]

REACTIONS (2)
  - PLEURAL FIBROSIS [None]
  - PNEUMONIA BACTERIAL [None]
